FAERS Safety Report 13008804 (Version 3)
Quarter: 2017Q1

REPORT INFORMATION
  Report Type: Report from Study
  Country: DE (occurrence: DE)
  Receive Date: 20161208
  Receipt Date: 20170113
  Transmission Date: 20170428
  Serious: Yes (Other)
  Sender: FDA-Public Use
  Company Number: PHHY2016DE109971

PATIENT
  Sex: Female
  Weight: 58 kg

DRUGS (3)
  1. AFINITOR [Suspect]
     Active Substance: EVEROLIMUS
     Indication: BREAST CANCER METASTATIC
     Dosage: 2.5 MG, QD
     Route: 048
     Dates: start: 20160607, end: 20160628
  2. AFINITOR [Suspect]
     Active Substance: EVEROLIMUS
     Dosage: 2.5 MG, QD
     Route: 048
     Dates: start: 20160728, end: 20160824
  3. EXEMESTANE. [Suspect]
     Active Substance: EXEMESTANE
     Indication: BREAST CANCER METASTATIC
     Dosage: 25 MG, QD
     Route: 048
     Dates: start: 20160607, end: 20160826

REACTIONS (12)
  - Mucosal inflammation [Recovered/Resolved]
  - Nausea [Recovered/Resolved]
  - Asthenia [Unknown]
  - Stomatitis [Unknown]
  - Stomatitis [Recovered/Resolved]
  - Oropharyngeal pain [Unknown]
  - Malignant neoplasm progression [Unknown]
  - Decreased appetite [Recovered/Resolved]
  - Sleep disorder [Unknown]
  - General physical health deterioration [Recovered/Resolved]
  - Nasopharyngitis [Unknown]
  - Eastern Cooperative Oncology Group performance status worsened [Recovered/Resolved]

NARRATIVE: CASE EVENT DATE: 201606
